FAERS Safety Report 6505487-6 (Version None)
Quarter: 2009Q4

REPORT INFORMATION
  Report Type: 
  Country: None (occurrence: None)
  Receive Date: 20091218
  Receipt Date: 20091207
  Transmission Date: 20100525
  Serious: Yes (Other)
  Sender: FDA-Public Use
  Company Number: NL-PFIZER INC-2009307183

PATIENT
  Sex: Male

DRUGS (1)
  1. NEURONTIN [Suspect]
     Indication: AGITATION
     Dosage: 100 MG, UNK
     Dates: start: 20091201

REACTIONS (3)
  - EPILEPSY [None]
  - KETOSIS [None]
  - REACTION TO DRUG EXCIPIENTS [None]
